FAERS Safety Report 9603918 (Version 1)
Quarter: 2013Q4

REPORT INFORMATION
  Report Type: Spontaneous
  Country: US (occurrence: US)
  Receive Date: 20131008
  Receipt Date: 20131008
  Transmission Date: 20140711
  Serious: Yes (Hospitalization)
  Sender: FDA-Public Use
  Company Number: US-BIOGENIDEC-2013BI095052

PATIENT
  Sex: Female

DRUGS (4)
  1. TECFIDERA [Suspect]
     Indication: MULTIPLE SCLEROSIS
  2. AVONEX [Concomitant]
     Indication: MULTIPLE SCLEROSIS
     Route: 030
  3. AVONEX [Concomitant]
     Indication: MULTIPLE SCLEROSIS
     Route: 030
     Dates: start: 20020917, end: 20061105
  4. TYSABRI [Concomitant]
     Indication: MULTIPLE SCLEROSIS
     Route: 042
     Dates: start: 20061129, end: 20130325

REACTIONS (3)
  - Hernia [Unknown]
  - Mobility decreased [Recovered/Resolved]
  - Asthenia [Recovered/Resolved]
